FAERS Safety Report 11316808 (Version 1)
Quarter: 2015Q3

REPORT INFORMATION
  Report Type: Spontaneous
  Country: TF (occurrence: None)
  Receive Date: 20150724
  Receipt Date: 20150724
  Transmission Date: 20151125
  Serious: Yes (Other)
  Sender: FDA-Public Use
  Company Number: AT-SEPTODONT-201301359

PATIENT
  Age: 82 Year
  Sex: Female
  Weight: 60 kg

DRUGS (3)
  1. PRADAXA [Concomitant]
     Active Substance: DABIGATRAN ETEXILATE MESYLATE
  2. SEPTANEST MIT ADRENALIN 1:100,000 ARTICAINE HYDROCHLORIDE; EPINEPHRINE TARTRATE [Suspect]
     Active Substance: ARTICAINE\EPINEPHRINE
     Indication: LOCAL ANAESTHESIA
     Route: 004
     Dates: start: 20130708
  3. ATACAND [Concomitant]
     Active Substance: CANDESARTAN CILEXETIL

REACTIONS (4)
  - Blood pressure increased [None]
  - Chills [None]
  - Asthenia [None]
  - Dysstasia [None]

NARRATIVE: CASE EVENT DATE: 20130708
